FAERS Safety Report 19841417 (Version 2)
Quarter: 2021Q4

REPORT INFORMATION
  Report Type: Spontaneous
  Country: PR (occurrence: US)
  Receive Date: 20210916
  Receipt Date: 20211023
  Transmission Date: 20220303
  Serious: Yes (Other)
  Sender: FDA-Public Use
  Company Number: PR-JNJFOC-20210913629

PATIENT
  Age: 44 Year
  Sex: Female

DRUGS (29)
  1. ELMIRON [Suspect]
     Active Substance: PENTOSAN POLYSULFATE SODIUM
     Indication: Cystitis interstitial
     Route: 048
     Dates: start: 200401, end: 202009
  2. ELMIRON [Suspect]
     Active Substance: PENTOSAN POLYSULFATE SODIUM
     Dosage: CONTINUOUSLY AND DAILY
     Route: 048
     Dates: end: 2021
  3. FUROSEMIDE [Concomitant]
     Active Substance: FUROSEMIDE
     Indication: Fluid retention
     Route: 065
     Dates: start: 201307, end: 202009
  4. GABAPENTIN [Concomitant]
     Active Substance: GABAPENTIN
     Indication: Pain management
     Route: 065
     Dates: start: 201412, end: 202009
  5. CYMBALTA [Concomitant]
     Active Substance: DULOXETINE HYDROCHLORIDE
     Indication: Pain management
     Dates: start: 201110, end: 202009
  6. IMURAN [Concomitant]
     Active Substance: AZATHIOPRINE
     Indication: Immunosuppression
     Dates: start: 201001, end: 202009
  7. ALBUTEROL [Concomitant]
     Active Substance: ALBUTEROL
     Indication: Antasthmatic drug level
     Dates: start: 201801, end: 202007
  8. VENTOLIN [Concomitant]
     Active Substance: ALBUTEROL SULFATE
     Indication: Antasthmatic drug level
     Dates: start: 201702, end: 202009
  9. FOLIC ACID [Concomitant]
     Active Substance: FOLIC ACID
     Indication: Vitamin supplementation
     Dates: start: 201508, end: 202009
  10. SYNTHROID [Concomitant]
     Active Substance: LEVOTHYROXINE SODIUM
     Indication: Basedow^s disease
     Dates: start: 201001, end: 202009
  11. NAPROSYN [Concomitant]
     Active Substance: NAPROXEN
     Indication: Antiinflammatory therapy
     Dates: start: 201507, end: 202009
  12. PREDNISONE [Concomitant]
     Active Substance: PREDNISONE
     Indication: Antiinflammatory therapy
     Dates: start: 201001, end: 202009
  13. POTASSIUM CHLORIDE [Concomitant]
     Active Substance: POTASSIUM CHLORIDE
     Indication: Blood potassium decreased
     Dates: start: 201306, end: 202009
  14. PRILOSEC [Concomitant]
     Active Substance: OMEPRAZOLE MAGNESIUM
     Dates: start: 201001, end: 202009
  15. IRON [Concomitant]
     Active Substance: IRON
     Indication: Mineral supplementation
     Dates: start: 201001, end: 202009
  16. HYDROXYZINE [Concomitant]
     Active Substance: HYDROXYZINE HYDROCHLORIDE
     Indication: Antiallergic therapy
     Dates: start: 201405, end: 202009
  17. AMITRIPTYLINE [Concomitant]
     Active Substance: AMITRIPTYLINE
     Indication: Pain management
     Dates: start: 201001, end: 202009
  18. ZOFRAN [Concomitant]
     Active Substance: ONDANSETRON HYDROCHLORIDE
     Indication: Antiemetic supportive care
     Dates: start: 201402, end: 202009
  19. BACLOFEN [Concomitant]
     Active Substance: BACLOFEN
     Indication: Muscle relaxant therapy
     Dates: start: 201001, end: 202009
  20. ATIVAN [Concomitant]
     Active Substance: LORAZEPAM
     Indication: Anxiety
     Dates: start: 201001
  21. ESTRADIOL [Concomitant]
     Active Substance: ESTRADIOL
     Indication: Hormone therapy
     Dates: start: 201110, end: 202009
  22. D3-1000 [Concomitant]
     Indication: Vitamin supplementation
     Dates: start: 201407, end: 201910
  23. CALCIUM\CHOLECALCIFEROL [Concomitant]
     Active Substance: CALCIUM\CHOLECALCIFEROL
     Indication: Vitamin supplementation
     Dates: start: 201510, end: 202009
  24. LORATADINE [Concomitant]
     Active Substance: LORATADINE
     Indication: Antiallergic therapy
     Dates: start: 201001, end: 201805
  25. DURAGESIC [Concomitant]
     Active Substance: FENTANYL
     Indication: Pain management
     Dates: start: 201509, end: 201805
  26. PERCOCET [Concomitant]
     Active Substance: ACETAMINOPHEN\OXYCODONE HYDROCHLORIDE
     Indication: Pain management
     Dates: start: 201402, end: 201805
  27. NORCO [Concomitant]
     Active Substance: ACETAMINOPHEN\HYDROCODONE BITARTRATE
     Indication: Pain management
     Dates: start: 201001, end: 201901
  28. COLACE [Concomitant]
     Active Substance: DOCUSATE SODIUM
     Indication: Crohn^s disease
     Dates: start: 201303, end: 202009
  29. COLACE [Concomitant]
     Active Substance: DOCUSATE SODIUM
     Indication: Abnormal faeces

REACTIONS (2)
  - Retinal dystrophy [Not Recovered/Not Resolved]
  - Retinal degeneration [Not Recovered/Not Resolved]

NARRATIVE: CASE EVENT DATE: 20180501
